FAERS Safety Report 15137717 (Version 1)
Quarter: 2018Q3

REPORT INFORMATION
  Report Type: Spontaneous
  Country: US (occurrence: US)
  Receive Date: 20180712
  Receipt Date: 20180712
  Transmission Date: 20181010
  Serious: No
  Sender: FDA-Public Use
  Company Number: US-NOVOPROD-597891

PATIENT
  Sex: Female

DRUGS (3)
  1. METFORMIN [Concomitant]
     Active Substance: METFORMIN HYDROCHLORIDE
     Indication: PRODUCT USED FOR UNKNOWN INDICATION
     Dosage: TWICE A DAY
     Route: 048
  2. TRESIBA [Suspect]
     Active Substance: INSULIN DEGLUDEC
     Indication: PRODUCT USED FOR UNKNOWN INDICATION
     Dosage: 26 U, UNK
     Route: 058
  3. TRESIBA [Suspect]
     Active Substance: INSULIN DEGLUDEC
     Dosage: 38 U, UNK
     Route: 058

REACTIONS (2)
  - Influenza [Unknown]
  - Blood glucose abnormal [Recovering/Resolving]
